FAERS Safety Report 18865040 (Version 1)
Quarter: 2021Q1

REPORT INFORMATION
  Report Type: Spontaneous
  Country: US (occurrence: US)
  Receive Date: 20210209
  Receipt Date: 20210209
  Transmission Date: 20210420
  Serious: No
  Sender: FDA-Public Use
  Company Number: US-RECORDATI RARE DISEASES-2106533

PATIENT
  Age: 6 Year
  Sex: Male

DRUGS (1)
  1. CARBAGLU [Suspect]
     Active Substance: CARGLUMIC ACID
     Indication: HYPERGLYCINAEMIA

REACTIONS (4)
  - Fatigue [Unknown]
  - Vomiting [Unknown]
  - Ammonia increased [Unknown]
  - Off label use [Unknown]

NARRATIVE: CASE EVENT DATE: 20200919
